FAERS Safety Report 4349040-1 (Version None)
Quarter: 2004Q2

REPORT INFORMATION
  Report Type: 
  Country: None (occurrence: None)
  Receive Date: 20040427
  Receipt Date: 20040427
  Transmission Date: 20050107
  Serious: No
  Sender: FDA-Public Use
  Company Number: None

PATIENT
  Age: 66 Year
  Sex: Female
  Weight: 61.2356 kg

DRUGS (2)
  1. LEXAPRO [Suspect]
     Indication: FIBROMYALGIA
     Dosage: 10 MG , DAILY
     Dates: start: 20030613, end: 20030801
  2. LEXAPRO [Suspect]
     Indication: PAIN
     Dosage: 10 MG , DAILY
     Dates: start: 20030613, end: 20030801

REACTIONS (21)
  - ABDOMINAL DISTENSION [None]
  - ABDOMINAL PAIN [None]
  - BACK PAIN [None]
  - CHILLS [None]
  - DYSKINESIA [None]
  - EYE BURNS [None]
  - EYE IRRITATION [None]
  - FLATULENCE [None]
  - GASTROOESOPHAGEAL REFLUX DISEASE [None]
  - HALLUCINATION [None]
  - HEADACHE [None]
  - HYPERHIDROSIS [None]
  - HYPOAESTHESIA [None]
  - OEDEMA PERIPHERAL [None]
  - PAIN [None]
  - PALPITATIONS [None]
  - PRURITUS [None]
  - RAYNAUD'S PHENOMENON [None]
  - RESTLESS LEGS SYNDROME [None]
  - SEROTONIN SYNDROME [None]
  - VISION BLURRED [None]
